FAERS Safety Report 18561428 (Version 1)
Quarter: 2020Q4

REPORT INFORMATION
  Report Type: Report from Study
  Country: US (occurrence: US)
  Receive Date: 20201130
  Receipt Date: 20201130
  Transmission Date: 20210114
  Serious: Yes (Hospitalization)
  Sender: FDA-Public Use
  Company Number: US-EISAI MEDICAL RESEARCH-EC-2020-084489

PATIENT
  Age: 64 Year
  Sex: Male
  Weight: 77.5 kg

DRUGS (28)
  1. ATORVASTATIN CALCIUM. [Concomitant]
     Active Substance: ATORVASTATIN CALCIUM
  2. MONTELUKAST [Concomitant]
     Active Substance: MONTELUKAST SODIUM
  3. PERCOCET [Concomitant]
     Active Substance: ACETAMINOPHEN\OXYCODONE HYDROCHLORIDE
  4. SPIRONOLACTONE. [Concomitant]
     Active Substance: SPIRONOLACTONE
  5. KEYTRUDA [Concomitant]
     Active Substance: PEMBROLIZUMAB
  6. HYDROCORTISONE. [Concomitant]
     Active Substance: HYDROCORTISONE
  7. NYSTATIN. [Concomitant]
     Active Substance: NYSTATIN
     Dosage: 100000/
  8. CEPHALEXIN. [Concomitant]
     Active Substance: CEPHALEXIN
  9. ALBUTEROL SULFATE. [Concomitant]
     Active Substance: ALBUTEROL SULFATE
  10. FASENRA [Concomitant]
     Active Substance: BENRALIZUMAB
  11. NITROGLYCERIN. [Concomitant]
     Active Substance: NITROGLYCERIN
  12. LIDOCAINE PROLOCAINE [Concomitant]
     Dosage: 2.5 PERCENT -2
  13. GABAPENTIN. [Concomitant]
     Active Substance: GABAPENTIN
  14. LEVOFLOXACIN. [Concomitant]
     Active Substance: LEVOFLOXACIN
  15. DRONABINOL. [Concomitant]
     Active Substance: DRONABINOL
  16. COLLAGENASE SANTYL [Concomitant]
     Active Substance: COLLAGENASE CLOSTRIDIUM HISTOLYTICUM
     Dosage: 250 UNI
  17. LEVOTHYROXINE SODIUM. [Concomitant]
     Active Substance: LEVOTHYROXINE SODIUM
  18. BUPROPION. [Concomitant]
     Active Substance: BUPROPION
  19. OXYCODONE ACETAMINOPHEN [Concomitant]
     Active Substance: ACETAMINOPHEN\OXYCODONE HYDROCHLORIDE
     Dosage: 5MG 32
  20. PREDNISONE. [Concomitant]
     Active Substance: PREDNISONE
  21. PROCHLORPERAZINE. [Concomitant]
     Active Substance: PROCHLORPERAZINE
  22. METOPROLOL SUCCINATE. [Concomitant]
     Active Substance: METOPROLOL SUCCINATE
  23. PEPCID [Concomitant]
     Active Substance: FAMOTIDINE
  24. BACTRIM [Concomitant]
     Active Substance: SULFAMETHOXAZOLE\TRIMETHOPRIM
  25. CLOPIDOGREL [Concomitant]
     Active Substance: CLOPIDOGREL BISULFATE
  26. LENVIMA [Suspect]
     Active Substance: LENVATINIB
     Indication: HEPATOCELLULAR CARCINOMA
     Route: 048
     Dates: start: 202003, end: 202011
  27. TIZANIDINE. [Concomitant]
     Active Substance: TIZANIDINE
  28. DIPHENHYDRAMINE HCL [Concomitant]
     Active Substance: DIPHENHYDRAMINE HYDROCHLORIDE

REACTIONS (3)
  - Vomiting [Unknown]
  - Seizure [Unknown]
  - Myocardial infarction [Unknown]

NARRATIVE: CASE EVENT DATE: 20201116
